FAERS Safety Report 6784646-1 (Version None)
Quarter: 2010Q2

REPORT INFORMATION
  Report Type: 
  Country: None (occurrence: None)
  Receive Date: 20100622
  Receipt Date: 20100617
  Transmission Date: 20101027
  Serious: Yes (Hospitalization)
  Sender: FDA-Public Use
  Company Number: B0657758A

PATIENT
  Sex: Female

DRUGS (14)
  1. AUGMENTIN '125' [Suspect]
     Indication: PROPHYLAXIS
     Dosage: 3G PER DAY
     Route: 042
     Dates: start: 20091217, end: 20091217
  2. ULTIVA [Suspect]
     Route: 042
     Dates: start: 20091217, end: 20091217
  3. ATRACURIUM [Suspect]
     Route: 042
     Dates: start: 20091217, end: 20091217
  4. PROPOFOL [Suspect]
     Route: 042
     Dates: start: 20091217, end: 20091217
  5. NORMACOL [Suspect]
     Indication: DRUG USE FOR UNKNOWN INDICATION
     Route: 054
     Dates: start: 20091216, end: 20091216
  6. BETADINE [Suspect]
     Indication: PREOPERATIVE CARE
     Route: 061
     Dates: start: 20091216, end: 20091217
  7. NAROPIN [Suspect]
     Indication: DRUG USE FOR UNKNOWN INDICATION
     Route: 026
     Dates: start: 20091217, end: 20091217
  8. DROPERIDOL [Suspect]
     Indication: DRUG USE FOR UNKNOWN INDICATION
     Route: 042
     Dates: start: 20091217, end: 20091217
  9. KETAMINE [Suspect]
     Indication: DRUG USE FOR UNKNOWN INDICATION
     Dosage: 10MCG PER DAY
     Route: 042
     Dates: start: 20091217, end: 20091217
  10. MORPHINE [Suspect]
     Indication: DRUG USE FOR UNKNOWN INDICATION
     Route: 042
     Dates: start: 20091217, end: 20091217
  11. BETADINE [Suspect]
     Route: 067
     Dates: start: 20091217, end: 20091217
  12. OXYGENE + PROTOXYDE AZOTE [Suspect]
     Route: 055
     Dates: start: 20091217, end: 20091217
  13. NEURONTIN [Concomitant]
     Indication: PREMEDICATION
     Dosage: 900MG PER DAY
     Route: 065
     Dates: start: 20091216, end: 20091221
  14. LOVENOX [Concomitant]
     Indication: PREMEDICATION
     Dosage: .4ML PER DAY
     Route: 065
     Dates: start: 20091216, end: 20091221

REACTIONS (5)
  - BLOOD CREATININE INCREASED [None]
  - LYMPHOPENIA [None]
  - PRODUCT QUALITY ISSUE [None]
  - RENAL FAILURE ACUTE [None]
  - THROMBOCYTOPENIA [None]
